FAERS Safety Report 10235769 (Version 2)
Quarter: 2014Q2

REPORT INFORMATION
  Report Type: Spontaneous
  Country: US (occurrence: US)
  Receive Date: 20140613
  Receipt Date: 20140625
  Transmission Date: 20141212
  Serious: No
  Sender: FDA-Public Use
  Company Number: US-PFIZER INC-2014161240

PATIENT
  Age: 63 Year
  Sex: Female
  Weight: 35.37 kg

DRUGS (6)
  1. LYRICA [Suspect]
     Indication: CENTRAL PAIN SYNDROME
     Dosage: 50 MG, DAILY
     Dates: start: 20140506
  2. LYRICA [Suspect]
     Indication: NEURALGIA
     Dosage: 50 MG, 3X/DAY
     Route: 048
     Dates: start: 20140507, end: 2014
  3. LYRICA [Suspect]
     Dosage: 50 MG, 1X/DAY
     Dates: start: 2014, end: 2014
  4. LYRICA [Suspect]
     Dosage: 50 MG, 3X/DAY
     Dates: start: 2014
  5. TRAMADOL [Concomitant]
     Indication: PAIN
     Dosage: 50 MG, 3X/DAY
  6. FLUCAINE [Concomitant]
     Dosage: UNK

REACTIONS (3)
  - Drug ineffective [Unknown]
  - Feeling abnormal [Unknown]
  - Pain [Unknown]
